FAERS Safety Report 4316185-1 (Version None)
Quarter: 2004Q1

REPORT INFORMATION
  Report Type: 
  Country: None (occurrence: None)
  Receive Date: 20040312
  Receipt Date: 20030221
  Transmission Date: 20041129
  Serious: Yes (Other)
  Sender: FDA-Public Use
  Company Number: US-GLAXOSMITHKLINE-A0397937A

PATIENT
  Age: 74 Year
  Sex: Male

DRUGS (11)
  1. ROSIGLITAZONE MALEATE [Suspect]
     Indication: DIABETES MELLITUS
     Dosage: 4MG PER DAY
     Route: 048
     Dates: start: 20020212, end: 20030219
  2. BETAMETHASONE [Concomitant]
  3. SIMVASTATIN [Concomitant]
  4. NIFEDIPINE [Concomitant]
  5. METOPROLOL [Concomitant]
  6. METFORMIN HCL [Concomitant]
  7. CYANOCOBALAMINE [Concomitant]
  8. ASPIRIN [Concomitant]
  9. PREDNISONE [Concomitant]
     Route: 048
  10. FOSINOPRIL SODIUM [Concomitant]
  11. NPH INSULIN [Concomitant]

REACTIONS (3)
  - DERMATITIS ALLERGIC [None]
  - PRURITUS [None]
  - VASCULITIC RASH [None]
